FAERS Safety Report 25760983 (Version 2)
Quarter: 2025Q3

REPORT INFORMATION
  Report Type: Report from Study
  Country: CA (occurrence: CA)
  Receive Date: 20250904
  Receipt Date: 20250909
  Transmission Date: 20251020
  Serious: Yes (Hospitalization, Disabling)
  Sender: TAKEDA
  Company Number: CA-TAKEDA-2025TUS077464

PATIENT
  Sex: Female

DRUGS (5)
  1. VEDOLIZUMAB [Suspect]
     Active Substance: VEDOLIZUMAB
     Indication: Crohn^s disease
  2. PREMARIN [Concomitant]
     Active Substance: ESTROGENS, CONJUGATED
  3. IRBESARTAN [Concomitant]
     Active Substance: IRBESARTAN
  4. CALCIUM [Concomitant]
     Active Substance: CALCIUM
  5. VITAMIN D [Concomitant]
     Active Substance: VITAMIN D NOS

REACTIONS (2)
  - Shoulder fracture [Unknown]
  - Fall [Unknown]
